FAERS Safety Report 23810727 (Version 2)
Quarter: 2024Q2

REPORT INFORMATION
  Report Type: Spontaneous
  Country: US (occurrence: US)
  Receive Date: 20240502
  Receipt Date: 20240503
  Transmission Date: 20240715
  Serious: No
  Sender: FDA-Public Use
  Company Number: US-PURDUE-USA-2024-0309356

PATIENT
  Sex: Male

DRUGS (1)
  1. DRONABINOL [Suspect]
     Active Substance: DRONABINOL
     Indication: Product used for unknown indication
     Dosage: 2.5 MILLIGRAM, UNK
     Route: 048

REACTIONS (2)
  - Product storage error [Unknown]
  - Product temperature excursion issue [Not Recovered/Not Resolved]
